FAERS Safety Report 5131319-7 (Version None)
Quarter: 2006Q4

REPORT INFORMATION
  Report Type: 
  Country: None (occurrence: None)
  Receive Date: 20061020
  Receipt Date: 20061013
  Transmission Date: 20070319
  Serious: Yes (Other)
  Sender: FDA-Public Use
  Company Number: PHRM2006FR02843

PATIENT
  Sex: Female

DRUGS (1)
  1. FRACTAL [Suspect]
     Indication: HYPERCHOLESTEROLAEMIA
     Dosage: 80 MG/DAY
     Route: 048
     Dates: start: 20060601, end: 20060901

REACTIONS (1)
  - CARBOHYDRATE ANTIGEN 19-9 INCREASED [None]
